FAERS Safety Report 25493525 (Version 1)
Quarter: 2025Q2

REPORT INFORMATION
  Report Type: Spontaneous
  Country: US (occurrence: US)
  Receive Date: 20250630
  Receipt Date: 20250630
  Transmission Date: 20250716
  Serious: Yes (Hospitalization)
  Sender: DR REDDYS
  Company Number: None

PATIENT
  Age: 57 Year
  Sex: Female

DRUGS (14)
  1. CLOZAPINE [Suspect]
     Active Substance: CLOZAPINE
     Indication: Schizophrenia
     Dosage: NIGHTLY; DISINTEGRATING TABLET
     Route: 048
  2. CLOZAPINE [Suspect]
     Active Substance: CLOZAPINE
     Dosage: NIGHTLY
  3. CIPROFLOXACIN [Suspect]
     Active Substance: CIPROFLOXACIN
     Indication: Cellulitis
     Dosage: DAY 5 OF HOSPITALIZATION
  4. CIPROFLOXACIN [Suspect]
     Active Substance: CIPROFLOXACIN
     Indication: Enterobacter infection
  5. ALBUTEROL SULFATE 90 HFA [Concomitant]
     Indication: Chronic obstructive pulmonary disease
     Dosage: 2 PUFFS BY MOUTH EVERY 6 HOURS AS NEEDED FOR SHORTNESS OF BREATH OR WHEEZING. AEROSOL INHALER
     Route: 055
  6. DIVALPROEX SODIUM [Concomitant]
     Active Substance: DIVALPROEX SODIUM
     Indication: Seizure
     Dosage: EXTENDED RELEASE, AT NIGHT
     Route: 048
  7. BETAMETHASONE DIPROPIONATE AUGMENTED [Concomitant]
     Active Substance: BETAMETHASONE DIPROPIONATE
     Indication: Dermatosis
     Route: 061
  8. CLOBETASOL [Concomitant]
     Active Substance: CLOBETASOL
     Indication: Dermatosis
     Dosage: APPLY TOPICALLY EVERY OTHER DAY AS NEEDED TO PERISTOMAL WOUND AT POUCH CHANGE
     Route: 061
  9. LATANOPROST [Concomitant]
     Active Substance: LATANOPROST
     Indication: Glaucoma
     Dosage: PLACE 1 DROP INTO BOTH EYES NIGHTLY
  10. CHOLECALCIFEROL [Concomitant]
     Active Substance: CHOLECALCIFEROL
     Indication: Vitamin D deficiency
     Route: 048
  11. METHYL SALICYLATE-MENTHOL [Concomitant]
     Indication: Analgesic therapy
     Dosage: APPLY TWICE A DAY TO THE AFFECTED AREAS; GREASELESS CREAM.
     Route: 061
  12. TACROLIMUS [Concomitant]
     Active Substance: TACROLIMUS
     Indication: Dermatitis contact
     Dosage: APPLY TOPICALLY DAILY AS NEEDED, PRN POUCH CHANGE TO WOUND BASE
     Route: 061
  13. CEPHALEXIN [Concomitant]
     Active Substance: CEPHALEXIN
     Indication: Cellulitis
  14. CEPHALEXIN [Concomitant]
     Active Substance: CEPHALEXIN
     Indication: Enterobacter infection

REACTIONS (5)
  - Sedation [Recovering/Resolving]
  - Somnolence [Recovering/Resolving]
  - Fatigue [Unknown]
  - Antipsychotic drug level increased [Recovering/Resolving]
  - Drug interaction [Recovering/Resolving]
